FAERS Safety Report 6656180-0 (Version None)
Quarter: 2010Q1

REPORT INFORMATION
  Report Type: 
  Country: None (occurrence: None)
  Receive Date: 20100329
  Receipt Date: 20100322
  Transmission Date: 20100710
  Serious: Yes (Hospitalization)
  Sender: FDA-Public Use
  Company Number: TR-ELI_LILLY_AND_COMPANY-TR201003006740

PATIENT
  Age: 44 Year
  Sex: Male

DRUGS (3)
  1. HUMALOG MIX 50/50 [Suspect]
     Indication: DIABETES MELLITUS
     Dosage: 20 U, 3/D
     Route: 058
     Dates: start: 20081118
  2. CANDESARTAN [Concomitant]
     Dosage: UNK, DAILY (1/D)
     Route: 065
  3. METFORMIN HYDROCHLORIDE [Concomitant]
     Dosage: UNK, DAILY (1/D)
     Route: 065

REACTIONS (4)
  - ASTHENIA [None]
  - DIABETIC HYPERGLYCAEMIC COMA [None]
  - PAIN IN EXTREMITY [None]
  - WEIGHT DECREASED [None]
